FAERS Safety Report 14494681 (Version 1)
Quarter: 2018Q1

REPORT INFORMATION
  Report Type: Spontaneous
  Country: US (occurrence: US)
  Receive Date: 20180206
  Receipt Date: 20180206
  Transmission Date: 20180509
  Serious: No
  Sender: FDA-Public Use
  Company Number: US-ELI_LILLY_AND_COMPANY-US201802000884

PATIENT
  Age: 78 Year
  Sex: Male

DRUGS (2)
  1. LARTRUVO [Suspect]
     Active Substance: OLARATUMAB
     Indication: SARCOMA
     Dosage: 1000 MG, UNK
  2. LARTRUVO [Suspect]
     Active Substance: OLARATUMAB
     Dosage: 380 MG, UNK

REACTIONS (3)
  - Off label use [Unknown]
  - Throat irritation [Recovered/Resolved]
  - Infusion related reaction [Recovered/Resolved]
